FAERS Safety Report 8159605-7 (Version None)
Quarter: 2012Q1

REPORT INFORMATION
  Report Type: 
  Country: None (occurrence: None)
  Receive Date: 20120223
  Receipt Date: 20120209
  Transmission Date: 20120608
  Serious: Yes (Life-Threatening, Other)
  Sender: FDA-Public Use
  Company Number: DE-ROCHE-1040969

PATIENT
  Age: 71 Year
  Sex: Male
  Weight: 80 kg

DRUGS (6)
  1. LISINOPRIL [Suspect]
     Indication: PRODUCT USED FOR UNKNOWN INDICATION
     Route: 048
  2. LEVOTHYROXINE SODIUM [Concomitant]
     Indication: THYROID DISORDER
  3. ASPIRIN [Concomitant]
  4. MOVIPREP [Concomitant]
     Indication: CONSTIPATION
  5. DIAMOX SRC [Concomitant]
     Indication: CATARACT
  6. ACTIVASE [Suspect]
     Indication: CEREBROVASCULAR ACCIDENT
     Route: 040
     Dates: start: 20120207

REACTIONS (5)
  - RESPIRATORY FAILURE [None]
  - DYSPNOEA [None]
  - CYANOSIS [None]
  - TRACHEAL OEDEMA [None]
  - ANGIOEDEMA [None]
